FAERS Safety Report 11386115 (Version 1)
Quarter: 2015Q3

REPORT INFORMATION
  Report Type: Report from Study
  Country: JP (occurrence: JP)
  Receive Date: 20150817
  Receipt Date: 20150817
  Transmission Date: 20151125
  Serious: Yes (Death, Hospitalization)
  Sender: FDA-Public Use
  Company Number: JP-ROCHE-1501816

PATIENT
  Age: 66 Year
  Sex: Female

DRUGS (28)
  1. METHOXY POLYETHYLENE GLYCOL-EPOETIN BETA [Suspect]
     Active Substance: METHOXY POLYETHYLENE GLYCOL-EPOETIN BETA
     Route: 058
     Dates: start: 20140402, end: 20140528
  2. METHOXY POLYETHYLENE GLYCOL-EPOETIN BETA [Suspect]
     Active Substance: METHOXY POLYETHYLENE GLYCOL-EPOETIN BETA
     Indication: NEPHROGENIC ANAEMIA
     Route: 058
     Dates: start: 20131209, end: 20131209
  3. METHOXY POLYETHYLENE GLYCOL-EPOETIN BETA [Suspect]
     Active Substance: METHOXY POLYETHYLENE GLYCOL-EPOETIN BETA
     Route: 058
     Dates: start: 20140625, end: 20141106
  4. MICARDIS [Concomitant]
     Active Substance: TELMISARTAN
     Route: 048
     Dates: end: 20141105
  5. DEPAS [Concomitant]
     Active Substance: ETIZOLAM
     Route: 048
  6. LIVALO [Concomitant]
     Active Substance: PITAVASTATIN CALCIUM
     Route: 048
  7. FESIN (JAPAN) [Concomitant]
     Active Substance: IRON SUCROSE
     Indication: NEPHROTIC SYNDROME
     Route: 042
     Dates: start: 20140528, end: 20140610
  8. METHOXY POLYETHYLENE GLYCOL-EPOETIN BETA [Suspect]
     Active Substance: METHOXY POLYETHYLENE GLYCOL-EPOETIN BETA
     Route: 058
     Dates: start: 20141203, end: 20141203
  9. BAYASPIRIN [Concomitant]
     Active Substance: ASPIRIN
     Route: 048
  10. CARBADOGEN [Concomitant]
     Route: 048
  11. ALDOMET [Concomitant]
     Active Substance: METHYLDOPA
     Route: 048
     Dates: start: 20141106
  12. CONIEL [Concomitant]
     Active Substance: BENIDIPINE HYDROCHLORIDE
     Route: 048
     Dates: start: 20141106
  13. PACKED RBC [Concomitant]
     Route: 065
     Dates: start: 20131231
  14. METHOXY POLYETHYLENE GLYCOL-EPOETIN BETA [Suspect]
     Active Substance: METHOXY POLYETHYLENE GLYCOL-EPOETIN BETA
     Route: 058
     Dates: start: 20140110, end: 20140110
  15. METHOXY POLYETHYLENE GLYCOL-EPOETIN BETA [Suspect]
     Active Substance: METHOXY POLYETHYLENE GLYCOL-EPOETIN BETA
     Route: 058
     Dates: start: 20140206, end: 20140206
  16. KREMEZIN [Concomitant]
     Active Substance: ACTIVATED CHARCOAL
     Indication: NEPHROTIC SYNDROME
     Route: 048
  17. ADALAT [Concomitant]
     Active Substance: NIFEDIPINE
     Route: 048
  18. APIDRA [Concomitant]
     Active Substance: INSULIN GLULISINE
     Route: 058
  19. FERROMIA [Concomitant]
     Active Substance: FERROUS CITRATE
     Indication: NEPHROTIC SYNDROME
     Route: 048
  20. PACKED RBC [Concomitant]
     Route: 065
     Dates: start: 20140101
  21. LASIX [Concomitant]
     Active Substance: FUROSEMIDE
     Route: 048
  22. LANSOPRAZOLE. [Concomitant]
     Active Substance: LANSOPRAZOLE
     Route: 048
  23. PLAVIX [Concomitant]
     Active Substance: CLOPIDOGREL BISULFATE
     Route: 048
     Dates: end: 20131218
  24. SALOBEL [Concomitant]
     Active Substance: ALLOPURINOL
     Route: 048
  25. TRAZENTA [Concomitant]
     Active Substance: LINAGLIPTIN
     Route: 048
     Dates: start: 20140402
  26. CARVEDILOL. [Concomitant]
     Active Substance: CARVEDILOL
     Route: 048
     Dates: start: 20141113
  27. METHOXY POLYETHYLENE GLYCOL-EPOETIN BETA [Suspect]
     Active Substance: METHOXY POLYETHYLENE GLYCOL-EPOETIN BETA
     Route: 058
     Dates: start: 20140305, end: 20140305
  28. PACKED RBC [Concomitant]
     Route: 065
     Dates: start: 20140528

REACTIONS (2)
  - Cardiac failure [Recovered/Resolved]
  - Cerebral haemorrhage [Fatal]

NARRATIVE: CASE EVENT DATE: 20131229
